FAERS Safety Report 9290603 (Version 2)
Quarter: 2013Q2

REPORT INFORMATION
  Report Type: Spontaneous
  Country: US (occurrence: US)
  Receive Date: 20130515
  Receipt Date: 20130515
  Transmission Date: 20140414
  Serious: Yes (Hospitalization)
  Sender: FDA-Public Use
  Company Number: US-BANPHARM-20131283

PATIENT
  Age: 65 Year
  Sex: Female

DRUGS (2)
  1. VITAMIN D UNKNOWN PRODUCT [Suspect]
  2. DILTIAZEM [Suspect]

REACTIONS (2)
  - Blood pressure increased [Unknown]
  - Heart rate increased [Unknown]
